FAERS Safety Report 12591091 (Version 1)
Quarter: 2016Q3

REPORT INFORMATION
  Report Type: Spontaneous
  Country: US (occurrence: US)
  Receive Date: 20160726
  Receipt Date: 20160726
  Transmission Date: 20161109
  Serious: No
  Sender: FDA-Public Use
  Company Number: US-ELI_LILLY_AND_COMPANY-US201607007276

PATIENT
  Age: 64 Year
  Sex: Female

DRUGS (3)
  1. FORTEO [Suspect]
     Active Substance: TERIPARATIDE
     Indication: PROPHYLAXIS
     Dosage: UNK, QD
     Route: 065
     Dates: start: 20160420
  2. VITAMIIN C [Concomitant]
     Active Substance: ASCORBIC ACID
  3. FORTEO [Suspect]
     Active Substance: TERIPARATIDE
     Indication: HIP FRACTURE

REACTIONS (7)
  - Arthralgia [Unknown]
  - Dry skin [Recovering/Resolving]
  - Asthenia [Unknown]
  - Myalgia [Unknown]
  - Off label use [Unknown]
  - Fatigue [Not Recovered/Not Resolved]
  - Decreased appetite [Unknown]

NARRATIVE: CASE EVENT DATE: 201605
